FAERS Safety Report 24711784 (Version 1)
Quarter: 2024Q4

REPORT INFORMATION
  Report Type: Spontaneous
  Country: CN (occurrence: CN)
  Receive Date: 20241209
  Receipt Date: 20241209
  Transmission Date: 20250115
  Serious: Yes (Life-Threatening, Other)
  Sender: ASTELLAS
  Company Number: CN-ASTELLAS-2024-AER-023918

PATIENT
  Age: 60 Year
  Sex: Male
  Weight: 68.0 kg

DRUGS (1)
  1. ISAVUCONAZONIUM SULFATE [Suspect]
     Active Substance: ISAVUCONAZONIUM SULFATE
     Indication: Aspergillus infection
     Dosage: 2X/DAY
     Route: 042
     Dates: start: 20241120, end: 20241121

REACTIONS (3)
  - Apnoea [Recovered/Resolved]
  - Blood pressure decreased [Recovering/Resolving]
  - Off label use [Unknown]

NARRATIVE: CASE EVENT DATE: 20241120
